FAERS Safety Report 9143815 (Version 2)
Quarter: 2013Q1

REPORT INFORMATION
  Report Type: Spontaneous
  Country: PL (occurrence: PL)
  Receive Date: 20130306
  Receipt Date: 20130314
  Transmission Date: 20140127
  Serious: Yes (Death, Other)
  Sender: FDA-Public Use
  Company Number: PL-CELGENEUS-129-50794-13023285

PATIENT
  Age: 79 Year
  Sex: Male

DRUGS (6)
  1. VIDAZA [Suspect]
     Indication: ACUTE MYELOID LEUKAEMIA
     Dosage: 144 MILLIGRAM
     Route: 058
     Dates: start: 20121026, end: 20130211
  2. ASA [Concomitant]
     Indication: MYOCARDIAL ISCHAEMIA
     Dosage: 75 MILLIGRAM
     Route: 048
     Dates: start: 2005
  3. VIVACOR [Concomitant]
     Indication: MYOCARDIAL ISCHAEMIA
     Dosage: 12.5 MILLIGRAM
     Route: 048
     Dates: start: 2007
  4. PRESTARIUM [Concomitant]
     Indication: MYOCARDIAL ISCHAEMIA
     Dosage: 5 MILLIGRAM
     Route: 048
     Dates: start: 2005
  5. ATORVASTATIN [Concomitant]
     Indication: MYOCARDIAL ISCHAEMIA
     Dosage: 40 MILLIGRAM
     Route: 048
     Dates: start: 2010
  6. OMNIC [Concomitant]
     Indication: BENIGN PROSTATIC HYPERPLASIA
     Dosage: .4 MILLIGRAM
     Route: 048
     Dates: start: 2002

REACTIONS (1)
  - Acute myeloid leukaemia [Fatal]
